FAERS Safety Report 4539184-3 (Version None)
Quarter: 2004Q4

REPORT INFORMATION
  Report Type: 
  Country: None (occurrence: None)
  Receive Date: 20041227
  Receipt Date: 20041227
  Transmission Date: 20050328
  Serious: Yes (Hospitalization)
  Sender: FDA-Public Use
  Company Number: None

PATIENT
  Sex: Male

DRUGS (1)
  1. IOTREX  PROXIMA THERAPEUTICS [Suspect]
     Indication: RADIOTHERAPY
     Dosage: OTHER
     Dates: start: 20041213, end: 20041214

REACTIONS (2)
  - BONE INFECTION [None]
  - SERRATIA INFECTION [None]
